FAERS Safety Report 6570076-4 (Version None)
Quarter: 2010Q2

REPORT INFORMATION
  Report Type: 
  Country: None (occurrence: None)
  Receive Date: 20100129
  Receipt Date: 20100118
  Transmission Date: 20101027
  Serious: Yes (Death, Hospitalization)
  Sender: FDA-Public Use
  Company Number: DSA_42417_2010

PATIENT
  Age: 17 Year
  Sex: Female

DRUGS (1)
  1. BUPROPION HCL [Suspect]
     Dosage: (190 DF 1X, NOT THE PRESCRIBED AMOUNT ORAL)
     Route: 048

REACTIONS (12)
  - ASCITES [None]
  - COMPLETED SUICIDE [None]
  - COMPLEX PARTIAL SEIZURES [None]
  - CONTUSION [None]
  - HYPOTENSION [None]
  - OVERDOSE [None]
  - PERICARDIAL EFFUSION [None]
  - PLEURAL EFFUSION [None]
  - POISONING [None]
  - PULMONARY CONGESTION [None]
  - PULMONARY OEDEMA [None]
  - TREATMENT FAILURE [None]
